FAERS Safety Report 19103203 (Version 9)
Quarter: 2024Q1

REPORT INFORMATION
  Report Type: Spontaneous
  Country: FR (occurrence: FR)
  Receive Date: 20210407
  Receipt Date: 20240313
  Transmission Date: 20240409
  Serious: Yes (Other)
  Sender: FDA-Public Use
  Company Number: FR-009507513-2009FRA007487

PATIENT
  Sex: Female
  Weight: 55 kg

DRUGS (5)
  1. NEXPLANON [Suspect]
     Active Substance: ETONOGESTREL
     Dosage: 1 IMPLANT
     Route: 059
     Dates: end: 20180706
  2. NEXPLANON [Suspect]
     Active Substance: ETONOGESTREL
     Dosage: 1 IMPLANT, IN RIGHT ARM
     Route: 059
     Dates: start: 20180706
  3. CHOLECALCIFEROL [Concomitant]
     Active Substance: CHOLECALCIFEROL
     Dosage: 1 DOSAGE FORM
     Route: 065
     Dates: start: 20200703
  4. MOVICOL [Concomitant]
     Active Substance: POLYETHYLENE GLYCOL 3350\POTASSIUM CHLORIDE\SODIUM BICARBONATE\SODIUM CHLORIDE
     Dosage: ONE DOSE ALD/LONG-TERM CONDITION WHEN PREGNANCY START
     Route: 065
  5. FERROUS SULFATE [Concomitant]
     Active Substance: FERROUS SULFATE
     Dosage: 1 DOSAGE FORM, QD
     Route: 065
     Dates: start: 20200707

REACTIONS (11)
  - Intellectual disability [Unknown]
  - Pregnancy with implant contraceptive [Recovered/Resolved]
  - HELLP syndrome [Unknown]
  - Device dislocation [Not Recovered/Not Resolved]
  - Caesarean section [Recovered/Resolved]
  - Unintended pregnancy [Recovered/Resolved]
  - Menstruation irregular [Not Recovered/Not Resolved]
  - Anxiety [Unknown]
  - Complication associated with device [Unknown]
  - Wrong technique in product usage process [Unknown]
  - Device placement issue [Unknown]

NARRATIVE: CASE EVENT DATE: 20190101
